FAERS Safety Report 7725459-3 (Version None)
Quarter: 2011Q3

REPORT INFORMATION
  Report Type: 
  Country: None (occurrence: None)
  Receive Date: 20110902
  Receipt Date: 20110825
  Transmission Date: 20111222
  Serious: Yes (Death, Hospitalization)
  Sender: FDA-Public Use
  Company Number: US-JNJFOC-20100705041

PATIENT
  Sex: Male
  Weight: 117.99 kg

DRUGS (25)
  1. CALCIUM CARBONATE [Concomitant]
     Indication: ILL-DEFINED DISORDER
     Route: 048
  2. CEFPODOXIME PROXETIL [Concomitant]
     Indication: ILL-DEFINED DISORDER
     Route: 048
  3. METFORMIN [Concomitant]
     Indication: ILL-DEFINED DISORDER
     Route: 065
  4. ATIVAN [Concomitant]
     Dosage: 1 TABLET AN HOUR BEFORE PROCEDURE. TAKE A SECOND TABLET IF REQUIRED.
     Route: 048
  5. NADOLOL [Concomitant]
     Indication: ILL-DEFINED DISORDER
     Route: 048
  6. PRILOSEC [Concomitant]
     Indication: ILL-DEFINED DISORDER
     Route: 048
     Dates: end: 20090922
  7. OXYCODONE HCL [Concomitant]
     Indication: PAIN
     Route: 048
  8. FLU VACCINE [Concomitant]
     Indication: INFLUENZA
  9. LASIX [Concomitant]
     Route: 048
  10. PRILOSEC [Concomitant]
     Route: 048
  11. FLAGYL [Concomitant]
     Indication: ILL-DEFINED DISORDER
     Route: 065
  12. AMIODARONE HCL [Concomitant]
     Indication: ILL-DEFINED DISORDER
     Route: 048
  13. LEVAQUIN [Suspect]
     Indication: HEPATIC NEOPLASM MALIGNANT
     Route: 065
     Dates: start: 20090901
  14. MOTRIN [Concomitant]
     Indication: PAIN
     Route: 048
  15. LASIX [Concomitant]
     Indication: ILL-DEFINED DISORDER
     Route: 048
     Dates: end: 20090922
  16. TRICOR [Concomitant]
     Indication: ILL-DEFINED DISORDER
     Route: 048
     Dates: end: 20090922
  17. LISINOPRIL [Concomitant]
     Indication: ILL-DEFINED DISORDER
     Route: 065
     Dates: end: 20090922
  18. DOXYCYCLINE [Concomitant]
     Indication: ILL-DEFINED DISORDER
     Route: 048
  19. CLINDAMYCIN [Concomitant]
     Indication: ILL-DEFINED DISORDER
     Route: 048
  20. METFORMIN [Concomitant]
     Dosage: WITH AM DOSE
     Route: 065
     Dates: start: 20090924
  21. METOPROLOL SUCCINATE [Concomitant]
     Indication: ILL-DEFINED DISORDER
     Dosage: BEFORE BREAKFAST AND BEFORE SUPPER, EXTENDED RELEASE
     Route: 048
  22. LEVAQUIN [Suspect]
     Indication: CELLULITIS
     Route: 042
  23. LACTULOSE [Concomitant]
     Indication: ILL-DEFINED DISORDER
     Route: 048
  24. COUMADIN [Concomitant]
     Indication: ATRIAL FIBRILLATION
     Dosage: 2.5 MG- SUNDAY, TUESDAY, WEDNESDAY, THURSDAY, SATURDAY; 5 MG- FRIDAY, MONDAY
     Route: 048
  25. POTASSIUM CHLORIDE [Concomitant]
     Indication: ILL-DEFINED DISORDER
     Dosage: 20 MEQ- SLOW RELEASE TABLET
     Route: 048
     Dates: end: 20090922

REACTIONS (2)
  - TENDON RUPTURE [None]
  - HEPATIC NEOPLASM MALIGNANT [None]
